FAERS Safety Report 12937180 (Version 3)
Quarter: 2018Q1

REPORT INFORMATION
  Report Type: Spontaneous
  Country: US (occurrence: US)
  Receive Date: 20161114
  Receipt Date: 20180124
  Transmission Date: 20180508
  Serious: No
  Sender: FDA-Public Use
  Company Number: US-PFIZER INC-2016519496

PATIENT
  Age: 69 Year
  Sex: Female
  Weight: 72 kg

DRUGS (3)
  1. IBRANCE [Suspect]
     Active Substance: PALBOCICLIB
     Indication: BREAST CANCER METASTATIC
     Dosage: 125 MG, CYCLIC,(DAYS 1-21 Q28 DAYS)
     Route: 048
     Dates: start: 20151201
  2. IBRANCE [Suspect]
     Active Substance: PALBOCICLIB
     Dosage: 125 MG, CYCLIC (DAY 1-2 Q28 DAYS)
     Route: 048
     Dates: start: 201512
  3. IBRANCE [Suspect]
     Active Substance: PALBOCICLIB
     Dosage: 125 MG, CYCLIC,(DAYS 1-21 Q28 DAYS)
     Route: 048
     Dates: start: 201512

REACTIONS (4)
  - Tumour marker increased [Unknown]
  - Fatigue [Unknown]
  - Arthralgia [Unknown]
  - Hypersomnia [Unknown]
